FAERS Safety Report 17447087 (Version 1)
Quarter: 2020Q1

REPORT INFORMATION
  Report Type: Spontaneous
  Country: US (occurrence: US)
  Receive Date: 20200221
  Receipt Date: 20200221
  Transmission Date: 20200409
  Serious: No
  Sender: FDA-Public Use
  Company Number: US-BAXTER-2020BAX004167

PATIENT
  Age: 29 Year
  Sex: Female

DRUGS (1)
  1. STERILE WATER [Suspect]
     Active Substance: WATER
     Indication: ACCIDENTAL EXPOSURE TO PRODUCT
     Route: 048
     Dates: start: 20200209, end: 20200209

REACTIONS (4)
  - Feeling cold [Recovering/Resolving]
  - Wrong product administered [Unknown]
  - Dizziness [Recovering/Resolving]
  - Upper respiratory tract congestion [Recovering/Resolving]

NARRATIVE: CASE EVENT DATE: 20200209
